FAERS Safety Report 12770866 (Version 1)
Quarter: 2016Q3

REPORT INFORMATION
  Report Type: Spontaneous
  Country: US (occurrence: US)
  Receive Date: 20160922
  Receipt Date: 20160922
  Transmission Date: 20161109
  Serious: Yes (Other)
  Sender: FDA-Public Use
  Company Number: None

PATIENT
  Age: 52 Year
  Sex: Female
  Weight: 68.95 kg

DRUGS (13)
  1. LATUDA [Suspect]
     Active Substance: LURASIDONE HYDROCHLORIDE
     Indication: BIPOLAR DISORDER
     Dosage: ONE 60MG. AT BREAKFAST MOUTH
     Route: 048
     Dates: start: 201601
  2. BUPROPION SR [Concomitant]
     Active Substance: BUPROPION
  3. HYDROXYZINE PAMOATE. [Concomitant]
     Active Substance: HYDROXYZINE PAMOATE
  4. CRANBERRY. [Concomitant]
     Active Substance: CRANBERRY
  5. LEVOTHYROXINE. [Concomitant]
     Active Substance: LEVOTHYROXINE
  6. COENZYME Q10 [Concomitant]
     Active Substance: UBIDECARENONE
  7. DULOXETINE. [Concomitant]
     Active Substance: DULOXETINE
  8. TRIPLE OMEGA 3-6-9 [Concomitant]
  9. CALCIUM PLUS VITAMIN D3 [Concomitant]
  10. C [Concomitant]
  11. MULTIVITAMIN/MULTIMINERAL [Concomitant]
     Active Substance: MINERALS\VITAMINS
  12. CLOZAPINE. [Concomitant]
     Active Substance: CLOZAPINE
  13. STRESS B COMPLEX W/ C [Concomitant]

REACTIONS (1)
  - Alopecia [None]

NARRATIVE: CASE EVENT DATE: 20160301
